FAERS Safety Report 16236376 (Version 2)
Quarter: 2019Q2

REPORT INFORMATION
  Report Type: Spontaneous
  Country: DE (occurrence: DE)
  Receive Date: 20190425
  Receipt Date: 20190426
  Transmission Date: 20190711
  Serious: Yes (Hospitalization, Other)
  Sender: FDA-Public Use
  Company Number: DE-UCBSA-2019015993

PATIENT
  Age: 33 Year
  Sex: Female
  Weight: 147 kg

DRUGS (1)
  1. CIMZIA [Suspect]
     Active Substance: CERTOLIZUMAB PEGOL
     Indication: PSORIASIS
     Dosage: 200 MILLIGRAM, ONCE DAILY (QD)
     Route: 058
     Dates: start: 20190102

REACTIONS (3)
  - Off label use [Unknown]
  - Maternal exposure during pregnancy [Unknown]
  - Abortion spontaneous [Not Recovered/Not Resolved]

NARRATIVE: CASE EVENT DATE: 20190102
